FAERS Safety Report 17771650 (Version 9)
Quarter: 2021Q3

REPORT INFORMATION
  Report Type: Report from Study
  Country: FR (occurrence: FR)
  Receive Date: 20200512
  Receipt Date: 20210823
  Transmission Date: 20211014
  Serious: Yes (Hospitalization)
  Sender: FDA-Public Use
  Company Number: FR-ROCHE-2594723

PATIENT
  Age: 59 Year
  Sex: Female
  Weight: 51 kg

DRUGS (30)
  1. LODOZ [Concomitant]
     Active Substance: BISOPROLOL FUMARATE\HYDROCHLOROTHIAZIDE
     Route: 048
  2. METHYLPREDNISOLONE. [Concomitant]
     Active Substance: METHYLPREDNISOLONE
     Indication: PREMEDICATION
     Route: 042
     Dates: start: 20191129, end: 20200610
  3. BINOCRIT [Concomitant]
     Active Substance: ERYTHROPOIETIN
     Indication: ANAEMIA
     Route: 042
     Dates: start: 20200407, end: 20200507
  4. INNOHEP [Concomitant]
     Active Substance: TINZAPARIN SODIUM
     Indication: PHLEBITIS
     Route: 030
     Dates: start: 20200420, end: 20200421
  5. LOPERAMIDE [Suspect]
     Active Substance: LOPERAMIDE
     Indication: HER2 NEGATIVE BREAST CANCER
     Dosage: ON 18/MAR/2020, SHE RECEIVED MOST RECENT DOSE OF LOPERAMIDE (4 MG) PRIOR TO AE ONSET
     Route: 048
     Dates: start: 20191203
  6. LEVOTHYROX [Concomitant]
     Active Substance: LEVOTHYROXINE
     Indication: HYPOTHYROIDISM
     Route: 048
     Dates: start: 201301
  7. AZANTAC [Concomitant]
     Active Substance: RANITIDINE HYDROCHLORIDE
     Route: 042
     Dates: start: 20191129
  8. BIONOLYTE [Concomitant]
     Active Substance: DEXTROSE\POTASSIUM CHLORIDE\SODIUM CHLORIDE
     Route: 042
     Dates: start: 20200420, end: 20200420
  9. ATEZOLIZUMAB. [Suspect]
     Active Substance: ATEZOLIZUMAB
     Indication: HER2 NEGATIVE BREAST CANCER
     Dosage: DOSE OF LAST DOSE (840 MG) ATEZOLIZUMAB ADMINISTERED PRIOR TO AE ONSET ON 28?APR?2015 5:15 PM
     Route: 041
     Dates: start: 20191129
  10. HYDROCLEAN [Concomitant]
     Route: 061
     Dates: start: 20200207, end: 20200927
  11. HYPNOVEL [Concomitant]
     Active Substance: MIDAZOLAM
  12. ABSTRAL [Concomitant]
     Active Substance: FENTANYL CITRATE
     Route: 060
  13. POTASSIUM CHLORIDE. [Concomitant]
     Active Substance: POTASSIUM CHLORIDE
     Indication: HYPOKALAEMIA
     Route: 042
     Dates: start: 20200420, end: 20200420
  14. POTASSIUM CHLORIDE. [Concomitant]
     Active Substance: POTASSIUM CHLORIDE
     Route: 042
     Dates: start: 20200421, end: 20200421
  15. LAMALINE [Concomitant]
     Dates: start: 20200420, end: 20200421
  16. SIMVASTATIN. [Concomitant]
     Active Substance: SIMVASTATIN
     Indication: HYPERCHOLESTEROLAEMIA
     Route: 048
  17. SPIFEN [Concomitant]
     Active Substance: IBUPROFEN
     Route: 048
     Dates: start: 20191105
  18. POLARAMINE [Concomitant]
     Active Substance: DEXCHLORPHENIRAMINE MALEATE
     Route: 062
     Dates: start: 20191129
  19. AQUACEL [Concomitant]
     Active Substance: CARBOXYMETHYLCELLULOSE SODIUM
     Route: 061
     Dates: start: 20200207, end: 20200227
  20. KALINOX [Concomitant]
     Active Substance: NITROUS OXIDE\OXYGEN
  21. DIFFU?K [Concomitant]
     Active Substance: POTASSIUM CHLORIDE
     Indication: HYPOKALAEMIA
     Route: 048
     Dates: start: 20200420, end: 20200420
  22. ACTISKENAN [Concomitant]
     Active Substance: MORPHINE SULFATE
     Route: 048
     Dates: start: 20200420, end: 20200421
  23. IPATASERTIB. [Suspect]
     Active Substance: IPATASERTIB
     Indication: HER2 NEGATIVE BREAST CANCER
     Dosage: ON 05/MAR/2020, SHE RECEIVED MOST RECENT DOSE OF IPATASERTIB PRIOR TO AE/SAE ONSET
     Route: 048
     Dates: start: 20191129
  24. PACLITAXEL. [Suspect]
     Active Substance: PACLITAXEL
     Indication: HER2 NEGATIVE BREAST CANCER
     Dosage: ON 28/APR/2020, SHE RECEIVED MOST RECENT DOSE OF PACLITAXEL (120 MG/M2) PRIOR TO AE ONSET AT 18:45
     Route: 042
     Dates: start: 20191129
  25. SKENAN [Concomitant]
     Active Substance: MORPHINE SULFATE
     Route: 048
     Dates: start: 20200420, end: 20200421
  26. EXFORGE [Concomitant]
     Active Substance: AMLODIPINE BESYLATE\VALSARTAN
     Indication: HYPERTENSION
     Route: 048
     Dates: start: 20191216, end: 201912
  27. MEPILEX BORDER AG [Concomitant]
     Dosage: 1 U
     Route: 061
     Dates: start: 20200207, end: 20200227
  28. OXYNORM [Concomitant]
     Active Substance: OXYCODONE HYDROCHLORIDE
  29. LAMALINE [Concomitant]
  30. DOLIPRANE [Concomitant]
     Active Substance: ACETAMINOPHEN
     Route: 048
     Dates: start: 20200420, end: 20200421

REACTIONS (1)
  - COVID-19 [Recovered/Resolved]

NARRATIVE: CASE EVENT DATE: 20200430
